FAERS Safety Report 25228757 (Version 1)
Quarter: 2025Q2

REPORT INFORMATION
  Report Type: Spontaneous
  Country: US (occurrence: US)
  Receive Date: 20250423
  Receipt Date: 20250423
  Transmission Date: 20250717
  Serious: Yes (Hospitalization)
  Sender: TEVA
  Company Number: US-TEVA-VS-3322273

PATIENT
  Age: 51 Year
  Sex: Female

DRUGS (1)
  1. AUSTEDO [Suspect]
     Active Substance: DEUTETRABENAZINE
     Indication: Tardive dyskinesia
     Route: 065

REACTIONS (4)
  - Vision blurred [Unknown]
  - Diarrhoea [Unknown]
  - Magnesium deficiency [Unknown]
  - Parkinsonism [Unknown]

NARRATIVE: CASE EVENT DATE: 20250414
